FAERS Safety Report 15895267 (Version 3)
Quarter: 2019Q2

REPORT INFORMATION
  Report Type: Spontaneous
  Country: US (occurrence: US)
  Receive Date: 20190131
  Receipt Date: 20190604
  Transmission Date: 20190711
  Serious: Yes (Other)
  Sender: FDA-Public Use
  Company Number: US-ASTRAZENECA-2019SE15340

PATIENT
  Age: 829 Month
  Sex: Male

DRUGS (2)
  1. SYMBICORT [Suspect]
     Active Substance: BUDESONIDE\FORMOTEROL FUMARATE DIHYDRATE
     Dosage: 160/4.5 MCG, TWO TIMES A DAY
     Route: 055
  2. SYMBICORT [Suspect]
     Active Substance: BUDESONIDE\FORMOTEROL FUMARATE DIHYDRATE
     Dosage: 160/4.5 MCG, TWO TIMES A DAY
     Route: 055
     Dates: start: 201901

REACTIONS (7)
  - Wrong technique in product usage process [Unknown]
  - Product dose omission [Unknown]
  - Off label use of device [Unknown]
  - Product packaging quantity issue [Unknown]
  - Vasculitis [Unknown]
  - Device failure [Unknown]
  - Irritability [Unknown]

NARRATIVE: CASE EVENT DATE: 201901
